FAERS Safety Report 15810338 (Version 1)
Quarter: 2019Q1

REPORT INFORMATION
  Report Type: Spontaneous
  Country: US (occurrence: US)
  Receive Date: 20190111
  Receipt Date: 20190111
  Transmission Date: 20190417
  Serious: No
  Sender: FDA-Public Use
  Company Number: US-ROCHE-2198300

PATIENT
  Age: 72 Year
  Sex: Male
  Weight: 129.39 kg

DRUGS (4)
  1. XARELTO [Concomitant]
     Active Substance: RIVAROXABAN
     Indication: PULMONARY EMBOLISM
     Dosage: ONGOING: YES
     Route: 048
     Dates: start: 201712
  2. RITUXAN [Suspect]
     Active Substance: RITUXIMAB
     Indication: RHEUMATOID ARTHRITIS
     Dosage: NEXT DOSE IN  14 DAYS AND THEN EVERY 4 TO 6 MONTHS ;ONGOING: YES
     Route: 042
     Dates: start: 20181003
  3. ASPIRIN. [Concomitant]
     Active Substance: ASPIRIN
     Dosage: ONGOING: YES
     Route: 048
     Dates: start: 2008
  4. ATENOLOL. [Concomitant]
     Active Substance: ATENOLOL
     Route: 048
     Dates: start: 1990

REACTIONS (3)
  - Dizziness [Not Recovered/Not Resolved]
  - Pain [Recovering/Resolving]
  - Balance disorder [Recovering/Resolving]

NARRATIVE: CASE EVENT DATE: 20181007
